FAERS Safety Report 4511889-X (Version None)
Quarter: 2004Q4

REPORT INFORMATION
  Report Type: 
  Country: None (occurrence: None)
  Receive Date: 20041129
  Receipt Date: 20041006
  Transmission Date: 20050328
  Serious: Yes (Life-Threatening, Hospitalization, Disabling)
  Sender: FDA-Public Use
  Company Number: US-MERCK-0410USA00862

PATIENT
  Age: 60 Year
  Sex: Male

DRUGS (5)
  1. VIOXX [Suspect]
     Indication: ARTHRITIS
     Route: 048
     Dates: start: 19990101
  2. VIOXX [Suspect]
     Indication: PAIN MANAGEMENT
     Route: 048
     Dates: start: 19990101
  3. PREVACID [Concomitant]
     Route: 065
  4. ATIVAN [Concomitant]
     Indication: HYPOTONIA
     Route: 065
  5. CELEBREX [Concomitant]
     Route: 065

REACTIONS (6)
  - AMAUROSIS [None]
  - BLOOD PRESSURE INCREASED [None]
  - CEREBROVASCULAR ACCIDENT [None]
  - HEADACHE [None]
  - SCOTOMA [None]
  - VISUAL ACUITY REDUCED [None]
